FAERS Safety Report 7988688-X (Version None)
Quarter: 2011Q4

REPORT INFORMATION
  Report Type: 
  Country: None (occurrence: None)
  Receive Date: 20111218
  Receipt Date: 20111206
  Transmission Date: 20120403
  Serious: Yes (Hospitalization, Other)
  Sender: FDA-Public Use
  Company Number: FR-ELI_LILLY_AND_COMPANY-FR201112001250

PATIENT
  Age: 30 Year
  Sex: Male

DRUGS (6)
  1. RIFADIN [Concomitant]
     Indication: ANTIBIOTIC THERAPY
     Dosage: 600 MG, BID
     Route: 042
     Dates: start: 20110802, end: 20110822
  2. FOSFOCINE [Concomitant]
     Indication: ANTIBIOTIC THERAPY
     Dosage: 4 G, TID
     Route: 042
     Dates: start: 20110725, end: 20110802
  3. ZYPREXA [Suspect]
     Indication: PSYCHOTIC DISORDER
     Dosage: 10 MG, QD
     Route: 048
     Dates: start: 20110727, end: 20110825
  4. CLAFORAN [Concomitant]
     Indication: ANTIBIOTIC THERAPY
     Dosage: 4 G, TID
     Route: 042
     Dates: start: 20110725, end: 20110802
  5. CLAFORAN [Concomitant]
     Dosage: 4 G, TID
     Route: 042
     Dates: start: 20110822, end: 20110825
  6. PIPERACILLINE [Concomitant]
     Indication: ANTIBIOTIC THERAPY
     Dosage: 4 G, TID
     Route: 042
     Dates: start: 20110802, end: 20110822

REACTIONS (1)
  - DRUG RASH WITH EOSINOPHILIA AND SYSTEMIC SYMPTOMS [None]
